FAERS Safety Report 17411329 (Version 3)
Quarter: 2020Q2

REPORT INFORMATION
  Report Type: Report from Study
  Country: US (occurrence: US)
  Receive Date: 20200212
  Receipt Date: 20200615
  Transmission Date: 20200713
  Serious: No
  Sender: FDA-Public Use
  Company Number: NVSC2020US038930

PATIENT
  Age: 47 Year
  Sex: Female

DRUGS (2)
  1. COSENTYX [Suspect]
     Active Substance: SECUKINUMAB
     Indication: PSORIASIS
     Dosage: 300 MG, QW
     Route: 058
  2. COSENTYX [Suspect]
     Active Substance: SECUKINUMAB
     Dosage: 300 MG, QMO
     Route: 058

REACTIONS (6)
  - Headache [Unknown]
  - Somnolence [Unknown]
  - Injection site pain [Recovered/Resolved]
  - Injection site hypoaesthesia [Unknown]
  - Injection site bruising [Recovered/Resolved]
  - Injection site paraesthesia [Unknown]

NARRATIVE: CASE EVENT DATE: 20200204
